FAERS Safety Report 22698306 (Version 11)
Quarter: 2025Q4

REPORT INFORMATION
  Report Type: Report from Study
  Country: MX (occurrence: MX)
  Receive Date: 20230712
  Receipt Date: 20251129
  Transmission Date: 20260117
  Serious: Yes (Other)
  Sender: NOVARTIS
  Company Number: MX-002147023-NVSC2023MX150214

PATIENT
  Sex: Female
  Weight: 69 kg

DRUGS (19)
  1. KISQALI [Suspect]
     Active Substance: RIBOCICLIB SUCCINATE
     Indication: Hormone receptor positive breast cancer
     Dosage: 600 MG (3 OF 200 MG), QD FOR 21 DAYS AND RESTS 1 WEEK
     Route: 048
     Dates: start: 2022
  2. KISQALI [Suspect]
     Active Substance: RIBOCICLIB SUCCINATE
     Indication: Breast cancer
     Dosage: 3 (200 MG), EVERY 24 HOURS
     Route: 048
     Dates: start: 202301, end: 20240205
  3. KISQALI [Suspect]
     Active Substance: RIBOCICLIB SUCCINATE
     Dosage: 3 DOSAGE FORM, QD
     Route: 048
  4. KISQALI [Suspect]
     Active Substance: RIBOCICLIB SUCCINATE
     Dosage: 600 MG, QD
     Route: 048
  5. KISQALI [Suspect]
     Active Substance: RIBOCICLIB SUCCINATE
     Dosage: 3 DF (200 MG), QD
     Route: 048
     Dates: start: 20230303
  6. KISQALI [Suspect]
     Active Substance: RIBOCICLIB SUCCINATE
     Dosage: THREE TABLETS A DAY FOR 21 DAYS AND REST FOR 1 WEEK
     Route: 048
  7. KISQALI [Suspect]
     Active Substance: RIBOCICLIB SUCCINATE
     Dosage: 200 MG
     Route: 048
  8. KISQALI [Suspect]
     Active Substance: RIBOCICLIB SUCCINATE
     Dosage: UNK
     Route: 048
  9. ANASTROZOLE [Suspect]
     Active Substance: ANASTROZOLE
     Indication: Hormone receptor positive breast cancer
     Dosage: 1MG (1 OF 1 MG), A DAY FOR 21 DAYS, SHE CONTINUES ON TREATMENT
     Route: 048
     Dates: start: 2016
  10. TRAMADOL [Suspect]
     Active Substance: TRAMADOL
     Indication: Product used for unknown indication
     Dosage: UNK
     Route: 065
  11. ARIMIDEX [Concomitant]
     Active Substance: ANASTROZOLE
     Indication: Breast cancer
     Dosage: 1 DOSAGE FORM, QD
     Route: 048
     Dates: start: 202301
  12. NEBIVOLOL [Concomitant]
     Active Substance: NEBIVOLOL
     Indication: Hypertension
     Dosage: 1 DOSAGE FORM, QD (8 YEARS AGO)
     Route: 048
  13. NEBIVOLOL [Concomitant]
     Active Substance: NEBIVOLOL
     Dosage: 1 DOSAGE FORM (1 OF 5 MG), QD
     Route: 048
     Dates: start: 2015
  14. FLORINEF ACETATE [Concomitant]
     Active Substance: FLUDROCORTISONE ACETATE
     Indication: Prophylaxis
     Dosage: 1 DOSAGE FORM, QD
     Route: 048
  15. RIVAROXABAN [Concomitant]
     Active Substance: RIVAROXABAN
     Indication: Anticoagulant therapy
     Dosage: 1 DOSAGE FORM, QD
     Route: 048
     Dates: start: 2016
  16. NEBIVOLOL [Concomitant]
     Active Substance: NEBIVOLOL
     Indication: Peripheral venous disease
     Dosage: 40 MG, Q24H (SEVERAL YEARS AGO)
     Route: 065
  17. VENLAFAXINE [Concomitant]
     Active Substance: VENLAFAXINE HYDROCHLORIDE
     Indication: Product used for unknown indication
     Dosage: UNK, Q24H
     Route: 048
  18. DIOSMIN [Concomitant]
     Active Substance: DIOSMIN
     Indication: Peripheral venous disease
     Dosage: 1 DOSAGE FORM, Q24H
     Route: 048
  19. CINNARIZINE [Concomitant]
     Active Substance: CINNARIZINE
     Indication: Dizziness
     Dosage: 1 DOSAGE FORM, Q24H
     Route: 048

REACTIONS (118)
  - Pulmonary embolism [Unknown]
  - Glaucoma [Unknown]
  - Pneumonia [Unknown]
  - Angina pectoris [Unknown]
  - Cataract [Recovered/Resolved]
  - Cerebral disorder [Not Recovered/Not Resolved]
  - Decreased immune responsiveness [Not Recovered/Not Resolved]
  - Gastrointestinal disorder [Unknown]
  - Epigastric discomfort [Unknown]
  - Blood cholesterol increased [Unknown]
  - Fatigue [Not Recovered/Not Resolved]
  - Decreased appetite [Unknown]
  - Abdominal discomfort [Unknown]
  - Fall [Recovered/Resolved]
  - Pain [Not Recovered/Not Resolved]
  - Nausea [Unknown]
  - Blood glucose increased [Unknown]
  - Red blood cell count decreased [Unknown]
  - Disorientation [Unknown]
  - Discomfort [Unknown]
  - White blood cell count decreased [Unknown]
  - Distractibility [Unknown]
  - Anaemia [Unknown]
  - Sleep disorder [Unknown]
  - Inflammation [Unknown]
  - Spinal disorder [Unknown]
  - Pain in extremity [Recovered/Resolved]
  - Joint injury [Unknown]
  - Nervousness [Unknown]
  - Tremor [Unknown]
  - Food aversion [Unknown]
  - Diarrhoea [Recovered/Resolved]
  - Bronchitis [Recovered/Resolved]
  - Cough [Not Recovered/Not Resolved]
  - Productive cough [Unknown]
  - Secretion discharge [Unknown]
  - Arthralgia [Unknown]
  - Peripheral swelling [Unknown]
  - Feeling hot [Unknown]
  - Exostosis [Unknown]
  - Flatulence [Unknown]
  - Malaise [Unknown]
  - Musculoskeletal disorder [Unknown]
  - Head injury [Recovered/Resolved]
  - Musculoskeletal discomfort [Not Recovered/Not Resolved]
  - Tension [Recovering/Resolving]
  - Dysuria [Unknown]
  - Pollakiuria [Unknown]
  - Muscle spasms [Unknown]
  - Renal pain [Unknown]
  - Bladder discomfort [Unknown]
  - Emotional distress [Unknown]
  - Weight decreased [Unknown]
  - Dyspepsia [Unknown]
  - Throat irritation [Unknown]
  - Chest pain [Unknown]
  - Chest discomfort [Recovering/Resolving]
  - Anxiety [Not Recovered/Not Resolved]
  - Eating disorder [Unknown]
  - Pain of skin [Unknown]
  - Bone pain [Unknown]
  - Fibromyalgia [Unknown]
  - Anger [Unknown]
  - Joint dislocation [Recovered/Resolved with Sequelae]
  - Injury [Unknown]
  - Somnolence [Unknown]
  - Lung disorder [Unknown]
  - Depressed mood [Unknown]
  - Infected bite [Unknown]
  - Eye disorder [Not Recovered/Not Resolved]
  - Ocular hyperaemia [Not Recovered/Not Resolved]
  - Swelling of eyelid [Not Recovered/Not Resolved]
  - Eye swelling [Unknown]
  - Vision blurred [Not Recovered/Not Resolved]
  - Hypertonic bladder [Recovered/Resolved]
  - Spinal pain [Not Recovered/Not Resolved]
  - Fall [Recovered/Resolved with Sequelae]
  - Stomatitis [Unknown]
  - Fall [Unknown]
  - Treatment failure [Unknown]
  - Asthenia [Unknown]
  - Conjunctivitis allergic [Not Recovered/Not Resolved]
  - Heart rate increased [Not Recovered/Not Resolved]
  - Nervous system disorder [Not Recovered/Not Resolved]
  - Glycosylated haemoglobin increased [Not Recovered/Not Resolved]
  - Onychoclasis [Not Recovered/Not Resolved]
  - Alopecia [Not Recovered/Not Resolved]
  - Blood calcium decreased [Not Recovered/Not Resolved]
  - Hypoaesthesia [Not Recovered/Not Resolved]
  - Feeling abnormal [Not Recovered/Not Resolved]
  - Feeling of despair [Not Recovered/Not Resolved]
  - Weight fluctuation [Unknown]
  - Taste disorder [Unknown]
  - Glossitis [Unknown]
  - Tongue dry [Unknown]
  - Gastritis [Unknown]
  - Musculoskeletal stiffness [Unknown]
  - Laziness [Not Recovered/Not Resolved]
  - Abnormal dreams [Not Recovered/Not Resolved]
  - Sleep apnoea syndrome [Not Recovered/Not Resolved]
  - Irritable bowel syndrome [Unknown]
  - Reflux gastritis [Recovering/Resolving]
  - Bone fissure [Unknown]
  - Muscular weakness [Unknown]
  - Fear [Unknown]
  - Hypochromasia [Unknown]
  - Burning sensation [Unknown]
  - Weight increased [Unknown]
  - Feeding disorder [Unknown]
  - Dry skin [Unknown]
  - Ageusia [Unknown]
  - Dysphagia [Unknown]
  - Gallbladder disorder [Unknown]
  - Face injury [Unknown]
  - Influenza like illness [Not Recovered/Not Resolved]
  - Off label use [Unknown]
  - Bronchitis [Recovering/Resolving]
  - Sensitivity to weather change [Unknown]

NARRATIVE: CASE EVENT DATE: 20230101
